FAERS Safety Report 19982998 (Version 1)
Quarter: 2021Q4

REPORT INFORMATION
  Report Type: Spontaneous
  Country: US (occurrence: US)
  Receive Date: 20211021
  Receipt Date: 20211021
  Transmission Date: 20220303
  Serious: Yes (Death)
  Sender: FDA-Public Use
  Company Number: None

PATIENT
  Sex: Male

DRUGS (2)
  1. DEFERASIROX [Suspect]
     Active Substance: DEFERASIROX
     Route: 048
  2. DEFERASIROX [Suspect]
     Active Substance: DEFERASIROX
     Indication: B-cell small lymphocytic lymphoma
     Route: 048

REACTIONS (1)
  - Death [None]
